FAERS Safety Report 7783631-0 (Version None)
Quarter: 2011Q3

REPORT INFORMATION
  Report Type: 
  Country: None (occurrence: None)
  Receive Date: 20110926
  Receipt Date: 20110921
  Transmission Date: 20111222
  Serious: Yes (Death, Hospitalization)
  Sender: FDA-Public Use
  Company Number: WAES 0903NLD00012

PATIENT
  Age: 73 Year
  Sex: Male

DRUGS (10)
  1. BUPRENORPHINE HCL [Concomitant]
  2. CARBOHYDRATES *UNSPECIFIED) + FAT (UNS [Concomitant]
  3. MY OXIDE [Concomitant]
  4. ESOMEPRAZOLE MAGNESIUM [Concomitant]
  5. SINTROM [Concomitant]
  6. HALOPERIDOL [Concomitant]
  7. VERAPAMIL [Concomitant]
  8. METHYLPHENIDATE HCL [Concomitant]
  9. CAP VORINOSTAT [Suspect]
     Indication: PRODUCT USED FOR UNKNOWN INDICATION
     Dosage: 300 MG/BID/PO
     Route: 048
     Dates: start: 20080611, end: 20090316
  10. PREDNISONE [Concomitant]

REACTIONS (4)
  - GENERAL PHYSICAL HEALTH DETERIORATION [None]
  - PNEUMONIA [None]
  - NEOPLASM PROGRESSION [None]
  - PLEURAL MESOTHELIOMA MALIGNANT [None]
